FAERS Safety Report 6329561-2 (Version None)
Quarter: 2009Q3

REPORT INFORMATION
  Report Type: 
  Country: None (occurrence: None)
  Receive Date: 20090824
  Receipt Date: 20090824
  Transmission Date: 20100115
  Serious: Yes (Disabling)
  Sender: FDA-Public Use
  Company Number: None

PATIENT
  Age: 28 Year
  Sex: Male
  Weight: 68.0396 kg

DRUGS (1)
  1. XOPENEX HFA [Suspect]
     Indication: ASTHMA
     Dosage: 45 MCG 3 X A DAY PO
     Route: 048
     Dates: start: 20050803, end: 20090823

REACTIONS (2)
  - DRUG INEFFECTIVE [None]
  - ECONOMIC PROBLEM [None]
